FAERS Safety Report 6959953-X (Version None)
Quarter: 2010Q3

REPORT INFORMATION
  Report Type: 
  Country: None (occurrence: None)
  Receive Date: 20100901
  Receipt Date: 20100820
  Transmission Date: 20110219
  Serious: Yes (Other)
  Sender: FDA-Public Use
  Company Number: PHHY2010US35895

PATIENT
  Sex: Female

DRUGS (2)
  1. RECLAST [Suspect]
     Dosage: UNK
     Dates: start: 20090701
  2. ULTRAM [Concomitant]
     Dosage: 50 MG

REACTIONS (7)
  - FEELING ABNORMAL [None]
  - GINGIVAL INFECTION [None]
  - GINGIVITIS [None]
  - HYPOKINESIA [None]
  - HYPOPHAGIA [None]
  - IMPAIRED HEALING [None]
  - TOOTH DISORDER [None]
